FAERS Safety Report 9147729 (Version 1)
Quarter: 2013Q1

REPORT INFORMATION
  Report Type: Spontaneous
  Country: US (occurrence: US)
  Receive Date: 20130307
  Receipt Date: 20130307
  Transmission Date: 20140127
  Serious: Yes (Hospitalization, Other)
  Sender: FDA-Public Use
  Company Number: US-ASTRAZENECA-2013SE14066

PATIENT
  Age: 71 Year
  Sex: Female
  Weight: 63.5 kg

DRUGS (11)
  1. NEXIUM [Suspect]
     Indication: GASTROOESOPHAGEAL REFLUX DISEASE
     Dosage: DAILY
     Route: 048
  2. ALBUTEROL TABLETS [Concomitant]
     Indication: ASTHMA
     Route: 048
  3. ASTHMANEX INHALER 220MG [Concomitant]
     Indication: ASTHMA
     Dosage: 220 MG, ONE PUFF TWO TIMES DAILY
     Route: 055
  4. HYDROCODONE [Concomitant]
     Indication: ARTHRALGIA
     Dosage: 10-650MG QID PRN
     Route: 048
  5. TEMAZEPAM [Concomitant]
     Indication: SLEEP DISORDER
     Dosage: 30-60MG HS PRN
     Route: 048
  6. FLUOXETINE [Concomitant]
     Indication: BIPOLAR DISORDER
     Route: 048
  7. RANITADINE [Concomitant]
     Indication: GASTROOESOPHAGEAL REFLUX DISEASE
     Route: 048
  8. CENTRUM PLUS FOR WOMEN [Concomitant]
     Indication: MEDICAL DIET
     Dosage: 1 TAB DAILY
     Route: 048
  9. VITAMIN E [Concomitant]
     Indication: HYPOTONIA
     Route: 048
  10. BALANCE B 100 COMPLEX [Concomitant]
     Indication: HYPOAESTHESIA
     Dosage: 1 TAB DAILY
     Route: 048
  11. VITAMIN C [Concomitant]
     Indication: NASOPHARYNGITIS
     Dosage: 6GMS DAILY
     Route: 048

REACTIONS (8)
  - Arthritis [Unknown]
  - Bladder disorder [Unknown]
  - Bone density decreased [Unknown]
  - Gastrooesophageal reflux disease [Unknown]
  - Ear discomfort [Unknown]
  - Diaphragmatic disorder [Unknown]
  - Osteoporosis [Unknown]
  - Intentional drug misuse [Unknown]
